FAERS Safety Report 12784162 (Version 1)
Quarter: 2016Q3

REPORT INFORMATION
  Report Type: Spontaneous
  Country: FR (occurrence: FR)
  Receive Date: 20160927
  Receipt Date: 20160927
  Transmission Date: 20161109
  Serious: Yes (Life-Threatening, Hospitalization)
  Sender: FDA-Public Use
  Company Number: FR-PFIZER INC-2016432760

PATIENT
  Age: 66 Year
  Sex: Male

DRUGS (15)
  1. NORSET [Concomitant]
     Active Substance: MIRTAZAPINE
     Dosage: 15 MG, UNK
  2. OXYNORMORO [Concomitant]
     Active Substance: OXYCODONE
     Dosage: 5 MG, UNK
  3. EDUCTYL [Concomitant]
     Active Substance: POTASSIUM BITARTRATE\SODIUM BICARBONATE
  4. OXYCONTIN [Concomitant]
     Active Substance: OXYCODONE HYDROCHLORIDE
     Dosage: 2 MG, UNK
  5. EZETROL [Concomitant]
     Active Substance: EZETIMIBE
  6. LYRICA [Concomitant]
     Active Substance: PREGABALIN
  7. DOLIPRANE [Concomitant]
     Active Substance: ACETAMINOPHEN
  8. INEXIUM /01479302/ [Concomitant]
     Active Substance: ESOMEPRAZOLE MAGNESIUM
     Dosage: 20 MG, UNK
  9. SUTENT [Suspect]
     Active Substance: SUNITINIB MALATE
     Indication: RENAL CANCER METASTATIC
     Dosage: 50 MG, DAILY
     Route: 048
     Dates: start: 20160609, end: 20160706
  10. SUTENT [Suspect]
     Active Substance: SUNITINIB MALATE
     Dosage: 50 MG, 1X/DAY
     Route: 048
     Dates: start: 20160722, end: 20160818
  11. SOLUPRED /00016201/ [Concomitant]
     Active Substance: PREDNISOLONE
     Dosage: 20 MG, UNK
  12. CRESTOR [Concomitant]
     Active Substance: ROSUVASTATIN CALCIUM
     Dosage: 5 MG, UNK
  13. DUOPLAVIN [Concomitant]
     Active Substance: ASPIRIN\CLOPIDOGREL
  14. MODANE /06372101/ [Concomitant]
     Active Substance: CALCIUM PANTOTHENATE\SENNA LEAF
  15. MOVICOL [Concomitant]
     Active Substance: POLYETHYLENE GLYCOL 3350\POTASSIUM CHLORIDE\SODIUM BICARBONATE\SODIUM CHLORIDE

REACTIONS (3)
  - Diverticular perforation [Not Recovered/Not Resolved]
  - Thyroid function test abnormal [Unknown]
  - Infection [Unknown]

NARRATIVE: CASE EVENT DATE: 20160620
